FAERS Safety Report 9342924 (Version 3)
Quarter: 2014Q1

REPORT INFORMATION
  Report Type: Spontaneous
  Country: US (occurrence: US)
  Receive Date: 20130611
  Receipt Date: 20140214
  Transmission Date: 20141002
  Serious: Yes (Hospitalization)
  Sender: FDA-Public Use
  Company Number: US-B.I. PHARMACEUTICALS,INC./RIDGEFIELD-2013-BI-16096BP

PATIENT
  Sex: Female
  Weight: 53.52 kg

DRUGS (8)
  1. PRADAXA [Suspect]
     Indication: ATRIAL FIBRILLATION
     Dosage: 300 MG
     Route: 048
     Dates: start: 20111027
  2. BONIVA [Concomitant]
  3. ADVAIR [Concomitant]
  4. DILTIAZEM [Concomitant]
     Dosage: 180 MG
  5. VENTOLIN [Concomitant]
     Route: 055
  6. LEVOTHYROXINE [Concomitant]
     Dosage: 75 MCG
  7. VIACTIV MULTIVITAMIN [Concomitant]
  8. PRESERVISION [Concomitant]
     Route: 048

REACTIONS (1)
  - Gastrointestinal haemorrhage [Recovered/Resolved]
